FAERS Safety Report 19935233 (Version 2)
Quarter: 2021Q4

REPORT INFORMATION
  Report Type: Report from Study
  Country: IL (occurrence: IL)
  Receive Date: 20211008
  Receipt Date: 20211012
  Transmission Date: 20220303
  Serious: Yes (Hospitalization, Other)
  Sender: FDA-Public Use
  Company Number: IL-MYLANLABS-2021M1070572

PATIENT
  Sex: Female
  Weight: 49.7 kg

DRUGS (13)
  1. IFOSFAMIDE [Suspect]
     Active Substance: IFOSFAMIDE
     Indication: Osteosarcoma
     Dosage: 6500 MILLIGRAM/SQ. METER
     Dates: start: 20210329, end: 20210331
  2. IFOSFAMIDE [Suspect]
     Active Substance: IFOSFAMIDE
     Dosage: 4530 MILLIGRAM/SQ. METER
     Dates: start: 20210419, end: 20210421
  3. IFOSFAMIDE [Suspect]
     Active Substance: IFOSFAMIDE
     Dosage: 4500 MILLIGRAM/SQ. METER
     Dates: start: 20210510, end: 20210511
  4. IFOSFAMIDE [Suspect]
     Active Substance: IFOSFAMIDE
     Dosage: 4500 MILLIGRAM/SQ. METER
     Dates: start: 20210531, end: 20210602
  5. ETOPOSIDE [Suspect]
     Active Substance: ETOPOSIDE
     Indication: Osteosarcoma
     Dosage: 150 MILLIGRAM/SQ. METER, CYCLIC
     Route: 042
     Dates: start: 20210329, end: 20210331
  6. ETOPOSIDE [Suspect]
     Active Substance: ETOPOSIDE
     Dosage: 150 MILLIGRAM/SQ. METER, CYCLIC
     Route: 042
     Dates: start: 20210419, end: 20210421
  7. ETOPOSIDE [Suspect]
     Active Substance: ETOPOSIDE
     Dosage: 150 MILLIGRAM/SQ. METER, CYCLIC
     Route: 042
     Dates: start: 20210510, end: 20210511
  8. ETOPOSIDE [Suspect]
     Active Substance: ETOPOSIDE
     Dosage: 150 MILLIGRAM/SQ. METER, CYCLIC
     Route: 042
     Dates: start: 20210531, end: 20210602
  9. LENVATINIB [Suspect]
     Active Substance: LENVATINIB
     Indication: Osteosarcoma
     Dosage: 21 MILLIGRAM, QD
     Route: 048
     Dates: start: 20210329, end: 20210422
  10. LENVATINIB [Suspect]
     Active Substance: LENVATINIB
     Dosage: 17 MILLIGRAM, QD
     Route: 048
     Dates: start: 20210428, end: 20210521
  11. LENVATINIB [Suspect]
     Active Substance: LENVATINIB
     Dosage: 17 MILLIGRAM, QD
     Route: 048
     Dates: start: 20210525, end: 20210603
  12. SULFAMETHOXAZOLE\TRIMETHOPRIM [Concomitant]
     Active Substance: SULFAMETHOXAZOLE\TRIMETHOPRIM
     Indication: Prophylaxis
     Dosage: 800 MILLIGRAM, QD
     Dates: start: 20210329
  13. OXYCODONE [Concomitant]
     Active Substance: OXYCODONE
     Indication: Pain
     Dosage: 5 MILLIGRAM, TID
     Route: 048
     Dates: start: 20210317

REACTIONS (9)
  - Proteinuria [Recovered/Resolved]
  - Cholecystitis [Recovered/Resolved]
  - Diarrhoea [Recovered/Resolved]
  - Abdominal pain [Recovered/Resolved]
  - Febrile neutropenia [Recovered/Resolved]
  - Hypophosphataemia [Recovered/Resolved]
  - Thrombocytopenia [Recovered/Resolved]
  - Syncope [Recovered/Resolved]
  - Dehydration [Recovered/Resolved]

NARRATIVE: CASE EVENT DATE: 20210409
